FAERS Safety Report 19576560 (Version 3)
Quarter: 2021Q3

REPORT INFORMATION
  Report Type: Report from Study
  Country: DE (occurrence: DE)
  Receive Date: 20210719
  Receipt Date: 20210726
  Transmission Date: 20211014
  Serious: Yes (Hospitalization)
  Sender: FDA-Public Use
  Company Number: DE-GLAXOSMITHKLINE-DE2021GSK150319

PATIENT
  Age: 51 Year
  Sex: Female
  Weight: 104 kg

DRUGS (6)
  1. CARBOPLATIN (NON?GSK COMPARATOR) [Suspect]
     Active Substance: CARBOPLATIN
     Indication: ENDOMETRIAL CANCER
     Dosage: 750 MG
     Route: 042
     Dates: start: 20201124, end: 20201124
  2. CARBOPLATIN (NON?GSK COMPARATOR) [Suspect]
     Active Substance: CARBOPLATIN
     Dosage: 750 MG
     Route: 042
     Dates: start: 20210414, end: 20210414
  3. PACLITAXEL. [Suspect]
     Active Substance: PACLITAXEL
     Dosage: 334 MG
     Route: 042
     Dates: start: 20210414, end: 20210414
  4. DOSTARLIMAB [Suspect]
     Active Substance: DOSTARLIMAB
     Indication: ENDOMETRIAL CANCER
     Dosage: 500 MG
     Dates: start: 20201124, end: 20201124
  5. DOSTARLIMAB [Suspect]
     Active Substance: DOSTARLIMAB
     Dosage: 1000 MG
     Dates: start: 20210616, end: 20210616
  6. PACLITAXEL. [Suspect]
     Active Substance: PACLITAXEL
     Indication: ENDOMETRIAL CANCER
     Dosage: 336 MG
     Route: 042
     Dates: start: 20201124, end: 20201124

REACTIONS (2)
  - General physical health deterioration [Not Recovered/Not Resolved]
  - Hypophysitis [Recovered/Resolved with Sequelae]

NARRATIVE: CASE EVENT DATE: 20210709
